FAERS Safety Report 7258757-0 (Version None)
Quarter: 2011Q1

REPORT INFORMATION
  Report Type: 
  Country: None (occurrence: None)
  Receive Date: 20110129
  Receipt Date: 20100517
  Transmission Date: 20110831
  Serious: No
  Sender: FDA-Public Use
  Company Number: US-ABBOTT-10P-163-0645175-00

PATIENT
  Sex: Female
  Weight: 86.26 kg

DRUGS (4)
  1. SPIRONOLACTONE [Concomitant]
     Indication: PRODUCT USED FOR UNKNOWN INDICATION
  2. DIOVAN [Concomitant]
     Indication: PRODUCT USED FOR UNKNOWN INDICATION
  3. HUMIRA [Suspect]
     Indication: PSORIATIC ARTHROPATHY
     Dates: start: 20091001
  4. HUMIRA [Suspect]
     Indication: PSORIASIS

REACTIONS (4)
  - HYPOAESTHESIA [None]
  - OEDEMA PERIPHERAL [None]
  - DYSPNOEA [None]
  - FATIGUE [None]
